FAERS Safety Report 14662891 (Version 3)
Quarter: 2020Q4

REPORT INFORMATION
  Report Type: Spontaneous
  Country: TH (occurrence: TH)
  Receive Date: 20180321
  Receipt Date: 20201229
  Transmission Date: 20210113
  Serious: Yes (Life-Threatening)
  Sender: FDA-Public Use
  Company Number: TH-NOVITIUM PHARMA LLC-2018-TH-000007

PATIENT
  Age: 34 Year
  Sex: Male

DRUGS (2)
  1. COLCHICINE. [Concomitant]
     Active Substance: COLCHICINE
     Indication: PRODUCT USED FOR UNKNOWN INDICATION
     Route: 065
  2. DAPSONE. [Suspect]
     Active Substance: DAPSONE
     Indication: ALOPECIA SCARRING
     Dosage: 100 MG PER DAY
     Route: 065

REACTIONS (5)
  - Pyrexia [Unknown]
  - Drug reaction with eosinophilia and systemic symptoms [Unknown]
  - Product use in unapproved indication [Unknown]
  - Rash maculo-papular [Unknown]
  - Rash erythematous [Unknown]
